FAERS Safety Report 13681094 (Version 1)
Quarter: 2017Q2

REPORT INFORMATION
  Report Type: Spontaneous
  Country: US (occurrence: US)
  Receive Date: 20170623
  Receipt Date: 20170623
  Transmission Date: 20170830
  Serious: Yes (Life-Threatening, Hospitalization, Other)
  Sender: FDA-Public Use
  Company Number: US-ASTRAZENECA-2017SE63480

PATIENT
  Sex: Female

DRUGS (6)
  1. LISINOPRIL. [Suspect]
     Active Substance: LISINOPRIL
     Route: 048
  2. ASPIRIN. [Concomitant]
     Active Substance: ASPIRIN
     Dosage: 81 MG
     Route: 048
  3. CRESTOR [Suspect]
     Active Substance: ROSUVASTATIN CALCIUM
     Indication: LIPIDS ABNORMAL
     Route: 048
  4. LEVEMIR [Concomitant]
     Active Substance: INSULIN DETEMIR
     Indication: DIABETES MELLITUS
     Dosage: DAILY
     Route: 065
  5. HYDROMORPHONE [Concomitant]
     Active Substance: HYDROMORPHONE
     Dosage: 8 MG EVERY 6 TO 8 HOURS
     Route: 048
  6. DIAZEPAM. [Concomitant]
     Active Substance: DIAZEPAM
     Dosage: 5 TO 10 MG THREE TIMES PER DAY
     Route: 048

REACTIONS (22)
  - Critical illness [Unknown]
  - Insomnia [Unknown]
  - Memory impairment [Unknown]
  - Ill-defined disorder [Unknown]
  - Fall [Unknown]
  - Diabetes mellitus [Unknown]
  - Nervous system disorder [Unknown]
  - Malaise [Unknown]
  - Electric shock [Unknown]
  - Tremor [Unknown]
  - Fatigue [Unknown]
  - Coma [Unknown]
  - Decreased appetite [Unknown]
  - Pain [Unknown]
  - Asthenia [Unknown]
  - Crying [Unknown]
  - Hypokinesia [Unknown]
  - Haemorrhage [Unknown]
  - Thermal burn [Unknown]
  - Weight decreased [Unknown]
  - Dysstasia [Unknown]
  - Sleep apnoea syndrome [Unknown]

NARRATIVE: CASE EVENT DATE: 20170422
